FAERS Safety Report 8919211 (Version 1)
Quarter: 2012Q4

REPORT INFORMATION
  Report Type: 
  Country: ES (occurrence: ES)
  Receive Date: 20121121
  Receipt Date: 20121121
  Transmission Date: 20130627
  Serious: Yes (Other)
  Sender: FDA-Public Use
  Company Number: ES-MYLANLABS-2012S1023599

PATIENT
  Age: 22 Year
  Sex: Male

DRUGS (17)
  1. CANDESARTAN CILEXETIL\HYDROCHLOROTHIAZIDE [Suspect]
     Indication: HYPERTENSION
     Dosage: 16/12.5 mg/day
     Route: 065
  2. VALSARTAN [Suspect]
     Indication: HYPERTENSION
     Dosage: 160 mg/day
     Route: 065
  3. QUINAPRIL [Suspect]
     Indication: HYPERTENSION
     Dosage: 20 mg/day
     Route: 065
  4. QUINAPRIL [Suspect]
     Indication: HYPERTENSION
     Dosage: 10 mg/day
     Route: 065
  5. PREDNISONE [Suspect]
     Indication: NEPHROTIC SYNDROME
     Dosage: 1 mg/kg/day with slow taper
     Route: 065
  6. MYCOPHENOLATE MOFETIL [Suspect]
     Indication: NEPHROTIC SYNDROME
     Dosage: 1-2 g/day
     Route: 065
  7. MYCOPHENOLATE MOFETIL [Suspect]
     Indication: NEPHROTIC SYNDROME
     Dosage: 0.5 g/day
     Route: 065
  8. MYCOPHENOLATE MOFETIL [Suspect]
     Indication: NEPHROTIC SYNDROME
     Dosage: 0.25 g/day
     Route: 065
  9. METHYLPREDNISOLONE [Suspect]
     Indication: NEPHROTIC SYNDROME
     Dosage: Short course (total dose 1250mg)
     Route: 042
  10. RITUXIMAB [Suspect]
     Indication: NEPHROTIC SYNDROME
     Dosage: 700 mg/cycle (2 cycles administered)
     Route: 065
  11. TACROLIMUS [Concomitant]
     Indication: NEPHROTIC SYNDROME
     Route: 065
  12. CALCIUM [Concomitant]
     Indication: BLOOD CALCIUM DECREASED
     Route: 065
  13. CALCITRIOL [Concomitant]
     Indication: BLOOD CALCIUM DECREASED
     Dosage: 0.25-0.5 microg/day
     Route: 065
     Dates: end: 200906
  14. PARICALCITOL [Concomitant]
     Indication: BLOOD CALCIUM DECREASED
     Dosage: 1-2 microg/day
     Route: 065
     Dates: start: 200906
  15. CALCIFEDIOL [Concomitant]
     Indication: BLOOD CALCIUM DECREASED
     Dosage: 1000 UI/day
     Route: 065
  16. ACENOCOUMAROL [Concomitant]
     Indication: ANTIPHOSPHOLIPID ANTIBODIES
     Route: 065
  17. PYRIDOXINE [Concomitant]
     Indication: ANTIPHOSPHOLIPID ANTIBODIES
     Route: 065

REACTIONS (1)
  - Bartter^s syndrome [Unknown]
